FAERS Safety Report 6866493-5 (Version None)
Quarter: 2010Q3

REPORT INFORMATION
  Report Type: 
  Country: None (occurrence: None)
  Receive Date: 20100722
  Receipt Date: 20100709
  Transmission Date: 20110219
  Serious: Yes (Hospitalization, Other)
  Sender: FDA-Public Use
  Company Number: PHEH2009US01813

PATIENT
  Sex: Female
  Weight: 5.102 kg

DRUGS (23)
  1. ELIDEL [Suspect]
     Indication: ECZEMA
     Dosage: UNK, UNK
     Route: 061
     Dates: start: 20040527
  2. HYDROCORTISONE [Concomitant]
     Indication: RASH
     Route: 061
  3. CLINDAMYCIN [Concomitant]
     Dosage: 600 MG, Q8H
  4. GENTAMICIN [Concomitant]
     Dosage: 80 MG, Q8H
  5. CEFAZOLIN [Concomitant]
     Dosage: 275 MG
  6. BACTRIM [Concomitant]
     Dosage: 23 MG / BID
     Route: 048
  7. ZOFRAN [Concomitant]
     Dosage: 4.5 MG / DAILY
  8. NEUPOGEN [Concomitant]
     Dosage: 50 MCG / DAILY
     Route: 058
  9. AMLODIPINE [Concomitant]
     Dosage: UNK
  10. MESNA [Concomitant]
  11. ONDANSETRON [Concomitant]
  12. DEXAMETHASONE [Concomitant]
  13. LORAZEPAM [Concomitant]
  14. LACTULOSE [Concomitant]
  15. NEUPOGEN [Concomitant]
  16. BACTROBAN                               /NET/ [Concomitant]
  17. NYSTATIN [Concomitant]
  18. BENADRYL ^PFIZER WARNER-LAMBERT^ [Concomitant]
  19. OXYCODONE HCL [Concomitant]
  20. HEPARIN [Concomitant]
  21. MEPRON [Concomitant]
  22. EMLA [Concomitant]
  23. EPOGEN [Concomitant]

REACTIONS (39)
  - ABDOMINAL DISTENSION [None]
  - ABDOMINAL MASS [None]
  - ABNORMAL BEHAVIOUR [None]
  - ANAEMIA [None]
  - ASPIRATION [None]
  - BLOOD CULTURE POSITIVE [None]
  - DECREASED APPETITE [None]
  - DRUG INEFFECTIVE [None]
  - DYSPHAGIA [None]
  - DYSPNOEA [None]
  - ECHOCARDIOGRAM ABNORMAL [None]
  - ECZEMA [None]
  - EXCORIATION [None]
  - EYELID PTOSIS [None]
  - GASTROENTERITIS VIRAL [None]
  - GASTROINTESTINAL TUBE INSERTION [None]
  - GENERAL PHYSICAL HEALTH DETERIORATION [None]
  - HYPERTENSION [None]
  - HYPOPHAGIA [None]
  - INFLUENZA [None]
  - LETHARGY [None]
  - NASAL CONGESTION [None]
  - NEPHRECTOMY [None]
  - NEPHROBLASTOMA [None]
  - NERVOUS SYSTEM DISORDER [None]
  - NEUTROPENIA [None]
  - PYREXIA [None]
  - RALES [None]
  - RASH ERYTHEMATOUS [None]
  - RENAL CANCER [None]
  - RENAL DISORDER [None]
  - SEPSIS [None]
  - SINUS TACHYCARDIA [None]
  - THROMBOCYTOSIS [None]
  - UPPER RESPIRATORY TRACT INFECTION [None]
  - URINE OUTPUT DECREASED [None]
  - VOCAL CORD DISORDER [None]
  - VOMITING [None]
  - WEIGHT DECREASED [None]
